FAERS Safety Report 12761457 (Version 1)
Quarter: 2016Q3

REPORT INFORMATION
  Report Type: Spontaneous
  Country: US (occurrence: US)
  Receive Date: 20160920
  Receipt Date: 20160920
  Transmission Date: 20161109
  Serious: Yes (Life-Threatening, Hospitalization, Other)
  Sender: FDA-Public Use
  Company Number: US-MACLEODS PHARMACEUTICALS US LTD-MAC2016003128

PATIENT

DRUGS (9)
  1. VALPROIC ACID. [Suspect]
     Active Substance: VALPROIC ACID
     Dosage: 500 MG, QD AT BEDTIME
     Route: 065
  2. RISPERIDONE. [Suspect]
     Active Substance: RISPERIDONE
     Indication: PRODUCT USED FOR UNKNOWN INDICATION
     Dosage: 0.5 MG, BID
     Route: 065
  3. VALPROIC ACID. [Suspect]
     Active Substance: VALPROIC ACID
     Indication: PRODUCT USED FOR UNKNOWN INDICATION
     Dosage: 375 MG  Q.A.M.
     Route: 065
  4. METHYLPHENIDATE HYDROCHLORIDE. [Suspect]
     Active Substance: METHYLPHENIDATE HYDROCHLORIDE
     Indication: PRODUCT USED FOR UNKNOWN INDICATION
     Dosage: 36 MG, Q.A.M.
     Route: 065
  5. RISPERIDONE. [Suspect]
     Active Substance: RISPERIDONE
     Dosage: 0.5 MG, Q.A.M.
     Route: 065
  6. MELATONIN [Concomitant]
     Active Substance: MELATONIN
     Indication: INSOMNIA
     Dosage: 5 MG, QD, AT BEDTIME AS NEEDED
     Route: 065
  7. PRAMIPEXOLE. [Suspect]
     Active Substance: PRAMIPEXOLE
     Indication: PRODUCT USED FOR UNKNOWN INDICATION
     Dosage: 0.125 MG, QD, AT BEDTIME
     Route: 065
  8. RISPERIDONE. [Suspect]
     Active Substance: RISPERIDONE
     Dosage: 1 MG, AT BED TIME
     Route: 065
  9. PAROXETINE. [Suspect]
     Active Substance: PAROXETINE
     Indication: PRODUCT USED FOR UNKNOWN INDICATION
     Dosage: 40 MG, Q.A.M.
     Route: 065

REACTIONS (23)
  - Gait disturbance [Unknown]
  - Agitation [Unknown]
  - Drug administered to patient of inappropriate age [Unknown]
  - Chills [Unknown]
  - Decerebrate posture [Unknown]
  - Disorientation [Unknown]
  - Neuroleptic malignant syndrome [Unknown]
  - Salivary hypersecretion [Unknown]
  - Hyperhidrosis [Unknown]
  - Mental status changes [Unknown]
  - Confusional state [Unknown]
  - Muscle rigidity [Unknown]
  - Tachypnoea [Unknown]
  - Aphasia [Unknown]
  - Dyskinesia [Unknown]
  - Somnolence [Unknown]
  - Myoclonus [Unknown]
  - Tachycardia [Unknown]
  - Dysarthria [Unknown]
  - Opisthotonus [Unknown]
  - Tremor [Unknown]
  - Dysphagia [Unknown]
  - Unresponsive to stimuli [Unknown]
